FAERS Safety Report 25819893 (Version 1)
Quarter: 2025Q3

REPORT INFORMATION
  Report Type: Spontaneous
  Country: US (occurrence: US)
  Receive Date: 20250918
  Receipt Date: 20250918
  Transmission Date: 20251020
  Serious: No
  Sender: KVK-TECH
  Company Number: US-KVK-TECH, INC-20240900141

PATIENT

DRUGS (1)
  1. OXYCODONE HYDROCHLORIDE [Suspect]
     Active Substance: OXYCODONE HYDROCHLORIDE
     Indication: Pain
     Route: 065
     Dates: start: 1013

REACTIONS (2)
  - Therapeutic response shortened [Unknown]
  - Product quality issue [Unknown]
